FAERS Safety Report 5995816-4 (Version None)
Quarter: 2008Q4

REPORT INFORMATION
  Report Type: 
  Country: None (occurrence: None)
  Receive Date: 20081212
  Receipt Date: 20081201
  Transmission Date: 20090506
  Serious: Yes (Hospitalization)
  Sender: FDA-Public Use
  Company Number: PL-PFIZER INC-2008101341

PATIENT

DRUGS (8)
  1. LYRICA [Suspect]
     Dosage: 75 MG, 3X/DAY
     Route: 048
     Dates: start: 20081023, end: 20081122
  2. AMARYL [Concomitant]
     Dosage: UNK
     Dates: start: 20081002
  3. FUROSEMIDE [Concomitant]
     Dosage: UNK
     Dates: start: 20081111, end: 20081120
  4. TRAMADOL HCL [Concomitant]
     Dosage: UNK
     Dates: end: 20081120
  5. TRANSTEC TTS [Concomitant]
     Dosage: UNK
     Dates: end: 20081120
  6. OXADILENE [Concomitant]
     Dosage: UNK
     Dates: start: 20081002
  7. HYDROCORTISONE [Concomitant]
     Dosage: UNK
     Dates: start: 20081031
  8. REXETIN [Concomitant]
     Dosage: UNK
     Dates: end: 20081120

REACTIONS (4)
  - ABDOMINAL PAIN [None]
  - DELIRIUM [None]
  - FAECALOMA [None]
  - GASTROINTESTINAL MOTILITY DISORDER [None]
